FAERS Safety Report 9371576 (Version 4)
Quarter: 2014Q2

REPORT INFORMATION
  Report Type: Spontaneous
  Country: JP (occurrence: JP)
  Receive Date: 20130627
  Receipt Date: 20140409
  Transmission Date: 20141212
  Serious: Yes (Hospitalization, Other)
  Sender: FDA-Public Use
  Company Number: JP-MPIJNJ-2013-04398

PATIENT
  Sex: 0

DRUGS (12)
  1. VELCADE [Suspect]
     Indication: PLASMA CELL MYELOMA
     Dosage: 2.2 MG, UNK
     Route: 058
     Dates: start: 20130516, end: 20130523
  2. ASPIRIN [Suspect]
     Indication: MYOCARDIAL INFARCTION
     Dosage: 100 MG, UNK
     Route: 048
     Dates: end: 20130528
  3. DEXAMETHASONE [Concomitant]
     Indication: PLASMA CELL MYELOMA
     Dosage: 40 MG, UNK
     Dates: start: 20130516, end: 20130523
  4. DIFLUCAN [Concomitant]
     Indication: PLASMA CELL MYELOMA
     Dosage: UNK
     Route: 048
     Dates: end: 20130528
  5. TAKEPRON [Concomitant]
     Dosage: UNK
     Route: 048
     Dates: end: 20130528
  6. SIGMART [Concomitant]
     Indication: MYOCARDIAL INFARCTION
     Dosage: UNK
     Route: 048
     Dates: end: 20130528
  7. PREDNISOLONE [Concomitant]
     Indication: MYALGIA
     Dosage: 2.5 MG, UNK
     Route: 048
     Dates: end: 20130528
  8. NORVASC [Concomitant]
     Indication: HYPERTENSION
     Dosage: 2.5 MG, UNK
     Route: 048
     Dates: end: 20130528
  9. BAKTAR [Concomitant]
     Dosage: UNK
     Route: 048
     Dates: end: 20130528
  10. LAC-B [Concomitant]
     Dosage: UNK
     Route: 048
     Dates: end: 20130528
  11. VALTREX [Concomitant]
     Dosage: 500 MG, UNK
     Route: 048
     Dates: end: 20130528
  12. RED BLOOD CELLS, CONCENTRATED [Concomitant]
     Dosage: 4 UNK, UNK
     Route: 042
     Dates: start: 20130520, end: 20130627

REACTIONS (2)
  - Gastrointestinal erosion [Recovering/Resolving]
  - Gastrointestinal haemorrhage [Recovering/Resolving]
